FAERS Safety Report 4357917-6 (Version None)
Quarter: 2004Q2

REPORT INFORMATION
  Report Type: 
  Country: None (occurrence: None)
  Receive Date: 20040513
  Receipt Date: 20040513
  Transmission Date: 20050107
  Serious: Yes (Other)
  Sender: FDA-Public Use
  Company Number: None

PATIENT
  Age: 15 Year
  Sex: Female
  Weight: 45.3597 kg

DRUGS (1)
  1. PAROXETINE 10 MG - 1/2 TABLET DAILY [Suspect]
     Indication: DYSTHYMIC DISORDER
     Dosage: 10 MG - 1/2 TABLET PO DAILY
     Route: 048
     Dates: start: 20040301, end: 20040501

REACTIONS (2)
  - DRUG INEFFECTIVE [None]
  - PHARMACEUTICAL PRODUCT COMPLAINT [None]
